FAERS Safety Report 5742156-4 (Version None)
Quarter: 2008Q2

REPORT INFORMATION
  Report Type: 
  Country: None (occurrence: None)
  Receive Date: 20080515
  Receipt Date: 20080501
  Transmission Date: 20081010
  Serious: Yes (Hospitalization, Other)
  Sender: FDA-Public Use
  Company Number: MSER20080008

PATIENT
  Age: 37 Year
  Sex: Female

DRUGS (7)
  1. MORPHINE SULFATE [Suspect]
     Indication: ABDOMINAL PAIN
     Dosage: 30 MG, 1 TABLET TID, PER ORAL
     Route: 048
  2. MORPHINE SULFATE [Suspect]
     Indication: ABDOMINAL PAIN
     Dosage: 20 MG, 1 TAB TID, PER ORAL
  3. MORPHINE SULFATE [Suspect]
     Indication: ABDOMINAL PAIN
     Dosage: 10 MG, 1 TABLET TID, PER ORAL
     Route: 048
  4. PAROXETINE HCL [Concomitant]
  5. CLONIDINE [Concomitant]
  6. LORAZEPAM [Concomitant]
  7. DESIPRAMINE HCL [Concomitant]

REACTIONS (6)
  - ABDOMINAL PAIN [None]
  - CONSTIPATION [None]
  - DIARRHOEA [None]
  - IRRITABLE BOWEL SYNDROME [None]
  - NAUSEA [None]
  - VOMITING [None]
